FAERS Safety Report 14908259 (Version 1)
Quarter: 2018Q2

REPORT INFORMATION
  Report Type: Spontaneous
  Country: CN (occurrence: CN)
  Receive Date: 20180517
  Receipt Date: 20180517
  Transmission Date: 20180711
  Serious: Yes (Other)
  Sender: FDA-Public Use
  Company Number: CN-ABBVIE-18P-035-2353263-00

PATIENT
  Age: 24 Year
  Sex: Male

DRUGS (3)
  1. REBOXETINE MESILATE [Suspect]
     Active Substance: REBOXETINE MESYLATE
     Indication: DRUG THERAPY
     Route: 048
     Dates: start: 20180227, end: 20180302
  2. DEPAKINE CHRONO [Suspect]
     Active Substance: VALPROATE SODIUM
     Indication: EMOTIONAL DISORDER
     Dosage: EXTENDED RELEASE TABLET
     Route: 048
     Dates: start: 20180222, end: 20180302
  3. ABILIFY [Suspect]
     Active Substance: ARIPIPRAZOLE
     Indication: EMOTIONAL DISORDER
     Route: 048
     Dates: start: 20180224, end: 20180302

REACTIONS (2)
  - Heart rate increased [None]
  - Arrhythmia [Recovering/Resolving]

NARRATIVE: CASE EVENT DATE: 20180302
